FAERS Safety Report 10083759 (Version 1)
Quarter: 2014Q2

REPORT INFORMATION
  Report Type: Spontaneous
  Country: DE (occurrence: None)
  Receive Date: 20140415
  Receipt Date: 20140415
  Transmission Date: 20141212
  Serious: Yes (Other)
  Sender: FDA-Public Use
  Company Number: SYM-2014-19755

PATIENT
  Sex: Male

DRUGS (1)
  1. ZYCLARA [Suspect]
     Indication: ACTINIC KERATOSIS
     Route: 061

REACTIONS (2)
  - Herpes ophthalmic [None]
  - Eye disorder [None]
